FAERS Safety Report 7132368-X (Version None)
Quarter: 2010Q4

REPORT INFORMATION
  Report Type: 
  Country: None (occurrence: None)
  Receive Date: 20101129
  Receipt Date: 20101129
  Transmission Date: 20110411
  Serious: Yes (Disabling)
  Sender: FDA-Public Use
  Company Number: None

PATIENT
  Age: 49 Year
  Sex: Female
  Weight: 66.4 kg

DRUGS (3)
  1. PERIOGARD [Suspect]
     Indication: POSTOPERATIVE CARE
     Dosage: 1/4 FL. OZ. -RINSE FOR 30 SECONDS TWICE DAILY ORAL
     Route: 048
     Dates: start: 20100818, end: 20100909
  2. PERIOGARD [Suspect]
     Indication: PROPHYLAXIS
     Dosage: 1/4 FL. OZ. -RINSE FOR 30 SECONDS TWICE DAILY ORAL
     Route: 048
     Dates: start: 20100818, end: 20100909
  3. CLINDAMYCIN [Concomitant]

REACTIONS (1)
  - DYSGEUSIA [None]
